FAERS Safety Report 5990734-X (Version None)
Quarter: 2008Q4

REPORT INFORMATION
  Report Type: 
  Country: None (occurrence: None)
  Receive Date: 20081209
  Receipt Date: 20081124
  Transmission Date: 20090506
  Serious: Yes (Hospitalization)
  Sender: FDA-Public Use
  Company Number: KV200800530

PATIENT
  Age: 74 Year
  Sex: Female
  Weight: 72.6 kg

DRUGS (3)
  1. PROPAFENONE HCL [Suspect]
     Indication: HEART RATE IRREGULAR
     Dosage: 150 MG, BID, ORAL
     Route: 048
     Dates: start: 20080701, end: 20081001
  2. LIPITOR [Concomitant]
  3. LEVOXYL [Concomitant]

REACTIONS (3)
  - BLOOD PRESSURE INCREASED [None]
  - MYOCARDIAL INFARCTION [None]
  - PALPITATIONS [None]
